FAERS Safety Report 17484185 (Version 1)
Quarter: 2020Q1

REPORT INFORMATION
  Report Type: Spontaneous
  Country: US (occurrence: US)
  Receive Date: 20200302
  Receipt Date: 20200302
  Transmission Date: 20200409
  Serious: Yes (Death, Other)
  Sender: FDA-Public Use
  Company Number: NVSC2020US057257

PATIENT
  Age: 56 Year
  Sex: Male

DRUGS (2)
  1. TRIMETHOPRIM SULFATE [Suspect]
     Active Substance: TRIMETHOPRIM SULFATE
     Indication: WHIPPLE^S DISEASE
     Dosage: UNK UNK, BID (DOUBLE STRENGTH)
     Route: 065
  2. CEFTRIAXONE. [Suspect]
     Active Substance: CEFTRIAXONE
     Indication: WHIPPLE^S DISEASE
     Dosage: 2 G, ONCE/SINGLE (FOR 4 WEEKS)
     Route: 065

REACTIONS (2)
  - Drug resistance [Fatal]
  - Condition aggravated [Fatal]
